FAERS Safety Report 16443719 (Version 1)
Quarter: 2019Q2

REPORT INFORMATION
  Report Type: Spontaneous
  Country: US (occurrence: US)
  Receive Date: 20190508
  Receipt Date: 20190508
  Transmission Date: 20190711
  Serious: Yes (Death)
  Sender: FDA-Public Use
  Company Number: None

PATIENT
  Age: 37 Year
  Sex: Male

DRUGS (1)
  1. TOBRAMYCIN. [Suspect]
     Active Substance: TOBRAMYCIN
     Indication: MUSCULAR DYSTROPHY
     Dosage: ?          OTHER DOSE:1 VIAL;OTHER FREQUENCY:BID EVERY OTH MON.;OTHER ROUTE:VIA NEBULIZER?
     Dates: start: 20150716, end: 201903

REACTIONS (1)
  - Death [None]

NARRATIVE: CASE EVENT DATE: 20190315
